FAERS Safety Report 7061601-8 (Version None)
Quarter: 2010Q4

REPORT INFORMATION
  Report Type: 
  Country: None (occurrence: None)
  Receive Date: 20101026
  Receipt Date: 20101022
  Transmission Date: 20110411
  Serious: Yes (Life-Threatening, Hospitalization)
  Sender: FDA-Public Use
  Company Number: FR-SANOFI-AVENTIS-2010SA064441

PATIENT
  Age: 81 Year
  Sex: Male

DRUGS (4)
  1. FUROSEMIDE [Suspect]
     Indication: PRODUCT USED FOR UNKNOWN INDICATION
     Route: 040
     Dates: start: 20100713, end: 20100713
  2. DITROPAN [Suspect]
     Route: 048
     Dates: start: 20100710, end: 20100713
  3. ALFUZOSIN HCL [Suspect]
     Route: 048
     Dates: start: 20100710, end: 20100713
  4. LOXAPAC [Suspect]
     Indication: AGITATION
     Route: 030
     Dates: start: 20100713, end: 20100713

REACTIONS (3)
  - CARDIO-RESPIRATORY ARREST [None]
  - TORSADE DE POINTES [None]
  - VENTRICULAR TACHYCARDIA [None]
